FAERS Safety Report 7851340 (Version 8)
Quarter: 2012Q4

REPORT INFORMATION
  Report Type: 
  Country: US (occurrence: US)
  Receive Date: 20110310
  Receipt Date: 20121016
  Transmission Date: 20130627
  Serious: Yes (Hospitalization, Disabling, Other)
  Sender: FDA-Public Use
  Company Number: US-009507513-1103USA00954

PATIENT

DRUGS (16)
  1. FOSAMAX [Suspect]
     Indication: OSTEOPENIA
     Dosage: 10 mg, UNK
     Route: 048
     Dates: start: 20000802
  2. FOSAMAX [Suspect]
     Indication: OSTEOPOROSIS
     Dosage: 70 mg, qw
     Route: 048
     Dates: end: 20080714
  3. FOSAMAX [Suspect]
     Indication: OSTEOPOROSIS
     Dosage: 70 mg, qw
     Route: 048
     Dates: start: 20080714, end: 20100809
  4. FOSAMAX [Suspect]
     Indication: OSTEOPENIA
  5. MAXALT [Concomitant]
     Indication: MIGRAINE
     Dosage: 10 mg, prn
  6. IMITREX (SUMATRIPTAN SUCCINATE) [Concomitant]
  7. VITAMIN B (UNSPECIFIED) [Concomitant]
     Dosage: 100 mg, qd
     Dates: start: 2000
  8. POTASSIUM GLUCONATE [Concomitant]
     Dosage: 550 mg, qd
     Dates: start: 2000
  9. SELENIUM (UNSPECIFIED) [Concomitant]
     Dosage: 200 mg, qd
     Dates: start: 2000
  10. ASCORBIC ACID [Concomitant]
     Dosage: 500 mg, qd
     Dates: start: 2000
  11. VITAMIN E [Concomitant]
     Dosage: 400 mg, qd
     Dates: start: 2000
  12. LECITHIN [Concomitant]
     Dosage: 1200 mg, qd
     Dates: start: 2000
  13. VITAMIN D (UNSPECIFIED) [Concomitant]
     Dosage: 1000 mg, bid
     Dates: start: 2000
  14. CALCIUM MAGNESIUM ZINC [Concomitant]
     Dosage: 1000 mg, bid
     Dates: start: 2000
  15. MK-9278 [Concomitant]
     Dosage: UNK UNK, qd
     Dates: start: 2000
  16. OMEGA-3 MARINE TRIGLYCERIDES [Concomitant]
     Dosage: 1000 mg, qd
     Dates: start: 2000

REACTIONS (39)
  - Osteoporosis [Not Recovered/Not Resolved]
  - Stress fracture [Not Recovered/Not Resolved]
  - Femur fracture [Not Recovered/Not Resolved]
  - Low turnover osteopathy [Not Recovered/Not Resolved]
  - Anaemia postoperative [Unknown]
  - Anaemia postoperative [Unknown]
  - Femur fracture [Not Recovered/Not Resolved]
  - Femur fracture [Not Recovered/Not Resolved]
  - Open reduction of fracture [Not Recovered/Not Resolved]
  - Open reduction of fracture [Not Recovered/Not Resolved]
  - Bursitis [Recovered/Resolved]
  - Road traffic accident [Unknown]
  - Nervousness [Unknown]
  - Ligament sprain [Recovering/Resolving]
  - Sinus congestion [Unknown]
  - Oropharyngeal pain [Unknown]
  - Chest discomfort [Unknown]
  - High density lipoprotein increased [Unknown]
  - Gastrointestinal motility disorder [Unknown]
  - Melanosis coli [Unknown]
  - Drug abuse [Unknown]
  - Body height decreased [Unknown]
  - Spinal osteoarthritis [Unknown]
  - Hypothyroidism [Unknown]
  - Dyslipidaemia [Unknown]
  - Anxiety [Unknown]
  - Adverse drug reaction [Unknown]
  - Osteoarthritis [Not Recovered/Not Resolved]
  - Skin injury [Unknown]
  - Parkinson^s disease [Unknown]
  - Laceration [Unknown]
  - Fall [Unknown]
  - Carotid arteriosclerosis [Unknown]
  - Back pain [Unknown]
  - Neck pain [Not Recovered/Not Resolved]
  - Headache [Unknown]
  - Blood calcium decreased [Unknown]
  - Pain in extremity [Not Recovered/Not Resolved]
  - Arthralgia [Unknown]
